FAERS Safety Report 20449171 (Version 1)
Quarter: 2022Q1

REPORT INFORMATION
  Report Type: Spontaneous
  Country: US (occurrence: US)
  Receive Date: 20220209
  Receipt Date: 20220209
  Transmission Date: 20220424
  Serious: No
  Sender: FDA-Public Use
  Company Number: US-ALLERGAN-2105490US

PATIENT
  Age: 24 Year
  Sex: Female

DRUGS (5)
  1. SAVELLA [Suspect]
     Active Substance: MILNACIPRAN HYDROCHLORIDE
     Indication: Fibromyalgia
     Dosage: 50 MG, QD
     Route: 048
     Dates: start: 20201216, end: 202101
  2. SAVELLA [Suspect]
     Active Substance: MILNACIPRAN HYDROCHLORIDE
     Indication: Depression
  3. MEGACE [Concomitant]
     Active Substance: MEGESTROL ACETATE
     Dosage: 120 MG, BID
  4. TIZANIDINE [Concomitant]
     Active Substance: TIZANIDINE
     Dosage: UNK, QD
  5. PROMETHAZINE [Concomitant]
     Active Substance: PROMETHAZINE HYDROCHLORIDE
     Dosage: UNK, PRN

REACTIONS (3)
  - Anxiety [Unknown]
  - Therapy interrupted [Unknown]
  - Hyperhidrosis [Recovered/Resolved]
